FAERS Safety Report 6562654-3 (Version None)
Quarter: 2010Q1

REPORT INFORMATION
  Report Type: 
  Country: None (occurrence: None)
  Receive Date: 20100130
  Receipt Date: 20091228
  Transmission Date: 20100710
  Serious: Yes (Other)
  Sender: FDA-Public Use
  Company Number: US-ABBOTT-09P-163-0609070-00

PATIENT
  Sex: Female
  Weight: 47.67 kg

DRUGS (9)
  1. HUMIRA [Suspect]
     Indication: RHEUMATOID ARTHRITIS
     Dates: start: 20041101
  2. UNKNOWN BLOOD PRESSURE MEDICATION [Concomitant]
     Indication: HYPERTENSION
  3. METROPOLOL SR [Concomitant]
     Indication: HYPERTENSION
  4. LANOXIN [Concomitant]
     Indication: CORONARY ARTERY BYPASS
  5. ASPIRIN [Concomitant]
     Indication: CORONARY ARTERY BYPASS
  6. ARAVA [Concomitant]
     Indication: RHEUMATOID ARTHRITIS
  7. CRESTOR [Concomitant]
     Indication: BLOOD CHOLESTEROL INCREASED
  8. ZETIA [Concomitant]
     Indication: BLOOD CHOLESTEROL INCREASED
  9. VITAMINS [Concomitant]
     Indication: VITAMIN SUPPLEMENTATION

REACTIONS (7)
  - ASTHENIA [None]
  - BLOOD CREATININE INCREASED [None]
  - BREAST CANCER [None]
  - DECREASED APPETITE [None]
  - HOT FLUSH [None]
  - NIGHT SWEATS [None]
  - WEIGHT DECREASED [None]
